FAERS Safety Report 6543578-4 (Version None)
Quarter: 2010Q1

REPORT INFORMATION
  Report Type: 
  Country: None (occurrence: None)
  Receive Date: 20100115
  Receipt Date: 20100112
  Transmission Date: 20100710
  Serious: Yes (Other)
  Sender: FDA-Public Use
  Company Number: A0838884A

PATIENT
  Age: 56 Year
  Sex: Female

DRUGS (1)
  1. ASPIRIN + CAFFEINE + SALICYLAMIDE POWDER (ASPIRIN+CAFFEINE+SALICYLA) [Suspect]
     Indication: DRUG USE FOR UNKNOWN INDICATION
     Dosage: PER DAY ORAL
     Route: 048

REACTIONS (1)
  - DEPENDENCE [None]
